FAERS Safety Report 7457073-1 (Version None)
Quarter: 2011Q2

REPORT INFORMATION
  Report Type: 
  Country: None (occurrence: None)
  Receive Date: 20110426
  Receipt Date: 20110411
  Transmission Date: 20111010
  Serious: Yes (Hospitalization)
  Sender: FDA-Public Use
  Company Number: 2011MA003692

PATIENT
  Age: 28 Year
  Sex: Female

DRUGS (5)
  1. VANCOMYCIN [Concomitant]
  2. TAZOBACTAM [Concomitant]
  3. PIPERACILLIN [Concomitant]
  4. SULFATRIM PEDIATRIC [Suspect]
     Indication: PNEUMOCYSTIS JIROVECI PNEUMONIA
     Dosage: 550 MG, Q6, IV
     Route: 042
     Dates: start: 20080101
  5. METHYLPREDNISOLONE [Concomitant]

REACTIONS (10)
  - PULMONARY SEPSIS [None]
  - SOFT TISSUE INFECTION [None]
  - RESPIRATORY ACIDOSIS [None]
  - MULTI-ORGAN DISORDER [None]
  - SKIN INFECTION [None]
  - RENAL FAILURE ACUTE [None]
  - RHABDOMYOLYSIS [None]
  - METABOLIC ACIDOSIS [None]
  - SYSTEMIC INFLAMMATORY RESPONSE SYNDROME [None]
  - HYPOTENSION [None]
